FAERS Safety Report 8184615-3 (Version None)
Quarter: 2012Q1

REPORT INFORMATION
  Report Type: 
  Country: None (occurrence: None)
  Receive Date: 20120305
  Receipt Date: 20120229
  Transmission Date: 20120608
  Serious: Yes (Death)
  Sender: FDA-Public Use
  Company Number: DE-PFIZER INC-2012040479

PATIENT
  Age: 74 Year
  Sex: Male
  Weight: 90 kg

DRUGS (10)
  1. FLUOROURACIL [Suspect]
     Indication: COLORECTAL CANCER METASTATIC
     Dosage: 3600MG+600 MG ^QD 15^
     Route: 042
     Dates: start: 20110915, end: 20120207
  2. ASPIRIN [Concomitant]
     Dosage: 100 MG, 1X/DAY
     Route: 048
  3. ACTRAPHANE [Concomitant]
     Dosage: STRENGTH 50/50: 20-13-0 IU, STRENGTH 30/70: 0-0-24 IU
  4. AMLODIPINE [Concomitant]
     Dosage: 5 MG, 1X/DAY
     Route: 048
  5. LEUCOVORIN CALCIUM [Suspect]
     Indication: COLORECTAL CANCER METASTATIC
     Dosage: 800 MG, ^QD 15^
     Route: 042
     Dates: start: 20110915, end: 20120207
  6. DEXAMETHASONE [Concomitant]
     Dosage: 4 MG, 1-0-1 DURING FOLFIRI
  7. IRINOTECAN HCL [Suspect]
     Indication: COLORECTAL CANCER METASTATIC
     Dosage: 270 MG, ^QD 15^
     Route: 042
     Dates: start: 20110915, end: 20120207
  8. ONDANSETRON [Concomitant]
     Dosage: 8 MG, 1-0-1 DURING FOLFIRI
  9. CETUXIMAB [Suspect]
     Indication: COLORECTAL CANCER METASTATIC
     Dosage: 500 MG, ^QD 8^
     Route: 042
     Dates: start: 20110915, end: 20120207
  10. PANTOPRAZOLE [Concomitant]
     Dosage: 40 MG, 1X/DAY
     Route: 048

REACTIONS (1)
  - SUDDEN DEATH [None]
